FAERS Safety Report 8078213-X (Version None)
Quarter: 2012Q1

REPORT INFORMATION
  Report Type: 
  Country: None (occurrence: None)
  Receive Date: 20120123
  Receipt Date: 20120114
  Transmission Date: 20120608
  Serious: Yes (Hospitalization, Other)
  Sender: FDA-Public Use
  Company Number: JPI-P-013962

PATIENT
  Age: 60 Year
  Sex: Female
  Weight: 56.6996 kg

DRUGS (11)
  1. OTHER UNSPECIFIED CHEMOTHERAPY [Suspect]
     Indication: BREAST CANCER STAGE III
     Dates: end: 20080901
  2. METRONIDAZOLE [Concomitant]
  3. LEVOTHYROXINE SODIUM [Concomitant]
  4. RADIATION THERAPY [Suspect]
     Indication: BREAST CANCER STAGE III
     Dates: end: 20081201
  5. XYREM [Suspect]
     Indication: CATAPLEXY
     Dosage: SEE IMAGE
     Route: 048
     Dates: start: 20070309, end: 20070313
  6. XYREM [Suspect]
     Indication: CATAPLEXY
     Dosage: SEE IMAGE
     Route: 048
     Dates: start: 20070215, end: 20070308
  7. XYREM [Suspect]
     Indication: CATAPLEXY
     Dosage: SEE IMAGE
     Route: 048
     Dates: start: 20070314
  8. XYREM [Suspect]
     Indication: CATAPLEXY
     Dosage: SEE IMAGE
     Route: 048
     Dates: start: 20110708
  9. EXEMESTANE [Suspect]
     Indication: BREAST CANCER STAGE III
     Dates: end: 20080901
  10. MULTI-VITAMINS [Concomitant]
  11. MAGNESIUM [Concomitant]

REACTIONS (10)
  - UTERINE LEIOMYOMA [None]
  - CONFUSIONAL STATE [None]
  - DIARRHOEA [None]
  - GASTROOESOPHAGEAL REFLUX DISEASE [None]
  - BREAST CANCER STAGE III [None]
  - EYELID OEDEMA [None]
  - DYSPHONIA [None]
  - OVARIAN CYST [None]
  - OEDEMA PERIPHERAL [None]
  - OSTEOPENIA [None]
